FAERS Safety Report 4640407-0 (Version None)
Quarter: 2005Q2

REPORT INFORMATION
  Report Type: 
  Country: None (occurrence: None)
  Receive Date: 20050419
  Receipt Date: 20050407
  Transmission Date: 20051028
  Serious: Yes (Other)
  Sender: FDA-Public Use
  Company Number: 2005056632

PATIENT
  Age: 62 Year
  Sex: Male
  Weight: 122.4712 kg

DRUGS (6)
  1. CELEBREX [Suspect]
     Indication: ARTHROPATHY
     Dosage: 200 MG ORAL
     Route: 048
     Dates: start: 20040101
  2. CELEBREX [Suspect]
     Indication: CARTILAGE INJURY
     Dosage: 200 MG ORAL
     Route: 048
     Dates: start: 20040101
  3. CELEBREX [Suspect]
     Indication: PLANTAR FASCIITIS
     Dosage: 200 MG ORAL
     Route: 048
     Dates: start: 20040101
  4. GEMFIBROZIL [Concomitant]
  5. TERAZOSIN HYDROCHLORIDE [Concomitant]
  6. AMLODIPINE BESYLATE [Concomitant]

REACTIONS (1)
  - PLANTAR FASCIITIS [None]
